FAERS Safety Report 10822050 (Version 1)
Quarter: 2015Q1

REPORT INFORMATION
  Report Type: Spontaneous
  Country: US (occurrence: None)
  Receive Date: 20150218
  Receipt Date: 20150218
  Transmission Date: 20150721
  Serious: No
  Sender: FDA-Public Use
  Company Number: None

PATIENT
  Sex: Female

DRUGS (1)
  1. INTUNIV [Suspect]
     Active Substance: GUANFACINE HYDROCHLORIDE
     Indication: ATTENTION DEFICIT/HYPERACTIVITY DISORDER
     Dosage: STRENGTH: 4MG, QUANTITY: 30 FOR 30 DAYS, DOSAGE REGIMEN: 1 PO DAILY?
     Route: 048

REACTIONS (6)
  - Disturbance in attention [None]
  - Death of relative [None]
  - Product substitution issue [None]
  - Tearfulness [None]
  - Grief reaction [None]
  - Depressed mood [None]
